FAERS Safety Report 24107811 (Version 1)
Quarter: 2024Q3

REPORT INFORMATION
  Report Type: Report from Study
  Country: BR (occurrence: None)
  Receive Date: 20240718
  Receipt Date: 20240718
  Transmission Date: 20241017
  Serious: Yes (Hospitalization, Other)
  Sender: ASTRAZENECA
  Company Number: 2020SF02069

PATIENT
  Age: 36 Year
  Sex: Female

DRUGS (10)
  1. FASENRA [Suspect]
     Active Substance: BENRALIZUMAB
     Indication: Asthma
     Dosage: 30.0MG/ML UNKNOWN
     Route: 058
     Dates: start: 20191216
  2. FASENRA [Suspect]
     Active Substance: BENRALIZUMAB
     Indication: Asthma
     Dosage: 30.0MG/ML UNKNOWN
     Route: 058
     Dates: start: 20201010
  3. SYMBICORT [Suspect]
     Active Substance: BUDESONIDE\FORMOTEROL FUMARATE DIHYDRATE
     Dosage: DAILY
     Route: 055
     Dates: end: 202008
  4. MONTELUKAST SODIUM [Concomitant]
     Active Substance: MONTELUKAST SODIUM
  5. BEROTEC [Concomitant]
     Active Substance: FENOTEROL HYDROBROMIDE
     Dosage: SPRAY, 2 JETS EVERY 8 HOURS, FOR FIVE DAYS
  6. ATROVENT [Concomitant]
     Active Substance: IPRATROPIUM BROMIDE
  7. SPIRIVA [Concomitant]
     Active Substance: TIOTROPIUM BROMIDE MONOHYDRATE
  8. AZITHROMYCIN [Concomitant]
     Active Substance: AZITHROMYCIN
  9. ACEBROPHYLLIN [Concomitant]
     Dosage: 50MG, 10ML EVERY 12 HOURS, FOR FIVE DAYS
  10. PREDNISONE [Concomitant]
     Active Substance: PREDNISONE

REACTIONS (7)
  - Epilepsy [Not Recovered/Not Resolved]
  - Sputum purulent [Recovered/Resolved]
  - Seizure [Not Recovered/Not Resolved]
  - Dyspnoea [Unknown]
  - Influenza [Recovered/Resolved]
  - Electrocardiogram abnormal [Unknown]
  - Catarrh [Recovered/Resolved]

NARRATIVE: CASE EVENT DATE: 20200101
